FAERS Safety Report 17004555 (Version 3)
Quarter: 2025Q2

REPORT INFORMATION
  Report Type: Spontaneous
  Country: US (occurrence: US)
  Receive Date: 20191107
  Receipt Date: 20250616
  Transmission Date: 20250716
  Serious: No
  Sender: PFIZER
  Company Number: US-PFIZER INC-2018249080

PATIENT
  Age: 69 Year
  Sex: Female

DRUGS (5)
  1. XELJANZ [Suspect]
     Active Substance: TOFACITINIB CITRATE
     Indication: Colitis ulcerative
     Dosage: 5 MG, 2X/DAY
     Route: 048
     Dates: start: 2018
  2. XELJANZ [Suspect]
     Active Substance: TOFACITINIB CITRATE
     Dosage: 10 MG, 2X/DAY (TAKE 2 TABLETS, TOTAL 10 MG, TWO TIMES DAILY)
     Route: 048
  3. XELJANZ [Suspect]
     Active Substance: TOFACITINIB CITRATE
     Dosage: 10 MG, 2X/DAY
     Route: 048
  4. PREDNISONE [Concomitant]
     Active Substance: PREDNISONE
  5. UCERIS [Concomitant]
     Active Substance: BUDESONIDE

REACTIONS (3)
  - Illness [Unknown]
  - Herpes zoster [Unknown]
  - Pruritus [Unknown]
